FAERS Safety Report 19591074 (Version 2)
Quarter: 2021Q4

REPORT INFORMATION
  Report Type: Report from Study
  Country: US (occurrence: US)
  Receive Date: 20210721
  Receipt Date: 20211004
  Transmission Date: 20220303
  Serious: Yes (Hospitalization, Other)
  Sender: FDA-Public Use
  Company Number: US-TAKEDA-2021TUS042630

PATIENT
  Age: 41 Year
  Sex: Male

DRUGS (8)
  1. TEDUGLUTIDE [Suspect]
     Active Substance: TEDUGLUTIDE
     Indication: Product used for unknown indication
     Dosage: 3.850 MILLIGRAM(0.0500 MG/KG), QD
     Route: 065
     Dates: start: 201602, end: 201608
  2. TEDUGLUTIDE [Suspect]
     Active Substance: TEDUGLUTIDE
     Indication: Product used for unknown indication
     Dosage: 3.850 MILLIGRAM(0.0500 MG/KG), QD
     Route: 065
     Dates: start: 201602, end: 201608
  3. TEDUGLUTIDE [Suspect]
     Active Substance: TEDUGLUTIDE
     Indication: Product used for unknown indication
     Dosage: 3.850 MILLIGRAM(0.0500 MG/KG), QD
     Route: 065
     Dates: start: 201602, end: 201608
  4. TEDUGLUTIDE [Suspect]
     Active Substance: TEDUGLUTIDE
     Indication: Product used for unknown indication
     Dosage: 3.850 MILLIGRAM(0.0500 MG/KG), QD
     Route: 065
     Dates: start: 201602, end: 201608
  5. REQUIP [Concomitant]
     Active Substance: ROPINIROLE HYDROCHLORIDE
     Indication: Iron deficiency anaemia
     Dosage: 1 MILLIGRAM, TID
     Route: 048
     Dates: start: 20170720, end: 20180222
  6. REQUIP [Concomitant]
     Active Substance: ROPINIROLE HYDROCHLORIDE
     Dosage: 2 MILLIGRAM, QD
     Route: 048
     Dates: start: 20170504, end: 20180222
  7. DELTASONE [Concomitant]
     Active Substance: PREDNISONE
     Indication: Bronchitis chronic
     Dosage: 5 MILLIGRAM, BID
     Route: 048
     Dates: start: 20170926, end: 20180222
  8. KAY CIEL [Concomitant]
     Active Substance: POTASSIUM CHLORIDE
     Indication: Electrolyte imbalance
     Dosage: 20 MEQ BY MOUTH PRN
     Route: 048
     Dates: start: 20170504, end: 20180222

REACTIONS (3)
  - Polyarthritis [Recovered/Resolved]
  - Device related bacteraemia [Recovered/Resolved]
  - Hypophosphataemia [Recovered/Resolved]

NARRATIVE: CASE EVENT DATE: 20190215
